FAERS Safety Report 24830189 (Version 1)
Quarter: 2025Q1

REPORT INFORMATION
  Report Type: Report from Study
  Country: CA (occurrence: CA)
  Receive Date: 20250110
  Receipt Date: 20250110
  Transmission Date: 20250409
  Serious: Yes (Hospitalization)
  Sender: SANDOZ
  Company Number: CA-SANDOZ-SDZ2024CA089039

PATIENT
  Sex: Male

DRUGS (4)
  1. HYRIMOZ [Suspect]
     Active Substance: ADALIMUMAB-ADAZ
     Indication: Hidradenitis
     Dosage: 40 MG, QW
     Route: 058
     Dates: start: 20241018
  2. AMOXICILLIN [Concomitant]
     Active Substance: AMOXICILLIN
     Indication: Product used for unknown indication
     Route: 065
  3. DEXAMETHASONE [Concomitant]
     Active Substance: DEXAMETHASONE
     Indication: Product used for unknown indication
     Route: 065
  4. FLUTICASONE [Concomitant]
     Active Substance: FLUTICASONE
     Indication: Product used for unknown indication
     Route: 065

REACTIONS (10)
  - Hospitalisation [Unknown]
  - Productive cough [Unknown]
  - Malaise [Unknown]
  - Fatigue [Unknown]
  - Diarrhoea [Unknown]
  - Injection site pain [Unknown]
  - Vomiting [Unknown]
  - Cough [Not Recovered/Not Resolved]
  - Nausea [Unknown]
  - Headache [Unknown]
